APPROVED DRUG PRODUCT: FLUOCINOLONE ACETONIDE
Active Ingredient: FLUOCINOLONE ACETONIDE
Strength: 0.01%
Dosage Form/Route: SOLUTION;TOPICAL
Application: A089124 | Product #001 | TE Code: AT
Applicant: SUN PHARMA CANADA INC
Approved: Sep 11, 1985 | RLD: No | RS: No | Type: RX